FAERS Safety Report 6538953-8 (Version None)
Quarter: 2010Q1

REPORT INFORMATION
  Report Type: 
  Country: None (occurrence: None)
  Receive Date: 20100115
  Receipt Date: 20100106
  Transmission Date: 20100710
  Serious: Yes (Hospitalization)
  Sender: FDA-Public Use
  Company Number: JP-ROCHE-665697

PATIENT
  Sex: Male
  Weight: 53 kg

DRUGS (13)
  1. ACTEMRA [Suspect]
     Indication: RHEUMATOID ARTHRITIS
     Route: 041
     Dates: start: 20080428, end: 20080428
  2. ACTEMRA [Suspect]
     Route: 041
     Dates: start: 20080526, end: 20080526
  3. ACTEMRA [Suspect]
     Route: 041
     Dates: start: 20080623, end: 20080623
  4. ACTEMRA [Suspect]
     Route: 041
     Dates: start: 20080722, end: 20080722
  5. ACTEMRA [Suspect]
     Route: 041
     Dates: start: 20080819, end: 20080819
  6. ACTEMRA [Suspect]
     Route: 041
     Dates: end: 20090914
  7. ACTEMRA [Suspect]
     Route: 041
     Dates: start: 20080916, end: 20080916
  8. ACTEMRA [Suspect]
     Route: 041
     Dates: start: 20081014, end: 20081014
  9. RHEUMATREX [Concomitant]
     Route: 048
     Dates: start: 20080226
  10. ISCOTIN [Concomitant]
     Route: 048
     Dates: start: 20080422
  11. PREDNISOLONE [Concomitant]
     Dosage: PREDOHAN(PREDNISOLONE)
     Route: 048
     Dates: start: 20080226
  12. ETODOLAC [Concomitant]
     Dosage: HISRACK(ETODOLAC)
     Route: 048
     Dates: start: 20080226
  13. TROXIPIDE [Concomitant]
     Route: 048
     Dates: start: 20080226

REACTIONS (1)
  - CARDIAC FAILURE ACUTE [None]
